FAERS Safety Report 24910738 (Version 2)
Quarter: 2025Q1

REPORT INFORMATION
  Report Type: Spontaneous
  Country: US (occurrence: US)
  Receive Date: 20250131
  Receipt Date: 20250306
  Transmission Date: 20250409
  Serious: No
  Sender: SUNOVION
  Company Number: US-SMPA-2025SPA000760AA

PATIENT

DRUGS (1)
  1. GEMTESA [Suspect]
     Active Substance: VIBEGRON
     Dosage: UNK, QD, IN EVENING
     Route: 048

REACTIONS (4)
  - Dizziness [Unknown]
  - Palpitations [Unknown]
  - Ocular discomfort [Unknown]
  - Blood pressure increased [Unknown]
